FAERS Safety Report 7361085-6 (Version None)
Quarter: 2011Q1

REPORT INFORMATION
  Report Type: 
  Country: None (occurrence: None)
  Receive Date: 20110318
  Receipt Date: 20110309
  Transmission Date: 20110831
  Serious: Yes (Other)
  Sender: FDA-Public Use
  Company Number: US-ROCHE-764612

PATIENT
  Sex: Female
  Weight: 27.3 kg

DRUGS (3)
  1. IBUPROFEN [Concomitant]
     Dosage: AS NEEEDED
  2. TAMIFLU [Suspect]
     Indication: INFLUENZA
     Route: 065
     Dates: start: 20110304, end: 20110308
  3. TYLENOL-500 [Concomitant]
     Dosage: DOSE: 160MG/5ML-10ML; AS NEEDED

REACTIONS (6)
  - GLOMERULAR FILTRATION RATE INCREASED [None]
  - ABASIA [None]
  - BLOOD CREATINE PHOSPHOKINASE INCREASED [None]
  - LIVER FUNCTION TEST ABNORMAL [None]
  - CREATININE RENAL CLEARANCE INCREASED [None]
  - BLOOD UREA INCREASED [None]
